FAERS Safety Report 16996526 (Version 3)
Quarter: 2020Q2

REPORT INFORMATION
  Report Type: Spontaneous
  Country: US (occurrence: US)
  Receive Date: 20191106
  Receipt Date: 20200501
  Transmission Date: 20200713
  Serious: Yes (Death, Hospitalization, Other)
  Sender: FDA-Public Use
  Company Number: US-ROCHE-2456177

PATIENT
  Age: 78 Year
  Sex: Male

DRUGS (10)
  1. PANTOPRAZOLE [Concomitant]
     Active Substance: PANTOPRAZOLE
  2. KEYTRUDA [Concomitant]
     Active Substance: PEMBROLIZUMAB
  3. LISINOPRIL. [Concomitant]
     Active Substance: LISINOPRIL
  4. OCREVUS [Suspect]
     Active Substance: OCRELIZUMAB
     Indication: SECONDARY PROGRESSIVE MULTIPLE SCLEROSIS
     Dosage: MOST RECENT DOSE ON FEB-2019
     Route: 042
     Dates: start: 201707
  5. HYDROCHLORTHIAZID [Concomitant]
     Active Substance: HYDROCHLOROTHIAZIDE
  6. BIOTIN [Concomitant]
     Active Substance: BIOTIN
  7. FLONASE [Concomitant]
     Active Substance: FLUTICASONE PROPIONATE
  8. MODAFINIL. [Concomitant]
     Active Substance: MODAFINIL
  9. SENNA [Concomitant]
     Active Substance: SENNA LEAF\SENNOSIDES\SENNOSIDES A AND B
  10. FLOMAX [Concomitant]
     Active Substance: TAMSULOSIN HYDROCHLORIDE

REACTIONS (5)
  - Aphasia [Unknown]
  - Progressive multifocal leukoencephalopathy [Unknown]
  - Multiple sclerosis [Unknown]
  - Facial paralysis [Unknown]
  - Death [Fatal]

NARRATIVE: CASE EVENT DATE: 20190810
